FAERS Safety Report 15225901 (Version 1)
Quarter: 2018Q3

REPORT INFORMATION
  Report Type: Spontaneous
  Country: US (occurrence: US)
  Receive Date: 20180801
  Receipt Date: 20180801
  Transmission Date: 20181010
  Serious: Yes (Hospitalization, Other)
  Sender: FDA-Public Use
  Company Number: US-ZYDUS-020972

PATIENT
  Age: 66 Year
  Sex: Male

DRUGS (4)
  1. SALSALATE. [Interacting]
     Active Substance: SALSALATE
     Indication: BACK PAIN
     Route: 065
  2. SALSALATE. [Interacting]
     Active Substance: SALSALATE
     Indication: ARTHRALGIA
     Route: 065
  3. WARFARIN [Suspect]
     Active Substance: WARFARIN
     Indication: ANTICOAGULANT THERAPY
     Route: 065
  4. DOXYCYCLINE. [Concomitant]
     Active Substance: DOXYCYCLINE
     Indication: COUGH
     Route: 065

REACTIONS (3)
  - International normalised ratio increased [Recovered/Resolved]
  - Contusion [Recovered/Resolved]
  - Drug interaction [Unknown]
